FAERS Safety Report 5327732-5 (Version None)
Quarter: 2007Q1

REPORT INFORMATION
  Report Type: 
  Country: None (occurrence: None)
  Receive Date: 20070223
  Receipt Date: 20060721
  Transmission Date: 20070707
  Serious: Yes (Life-Threatening, Hospitalization)
  Sender: FDA-Public Use
  Company Number: WAES 0607USA04338

PATIENT
  Age: 55 Year
  Sex: Female
  Weight: 127.0072 kg

DRUGS (16)
  1. ZOCOR [Suspect]
     Indication: CORONARY ARTERY DISEASE
     Dosage: 80 MG/DAILY/PO
     Route: 048
     Dates: start: 19960701, end: 20060718
  2. AMBIEN [Concomitant]
  3. FLEXERIL [Concomitant]
  4. FOSAMAX [Concomitant]
  5. GLUCOPHAGE [Concomitant]
  6. K-DUR 10 [Concomitant]
  7. LASIX [Concomitant]
  8. LIPITOR [Concomitant]
  9. VICODIN [Concomitant]
  10. ZESTRIL [Concomitant]
  11. ASPIRIN [Concomitant]
  12. ATENOLOL [Concomitant]
  13. CALCIUM (UNSPECIFIED) [Concomitant]
  14. GEMFIBROZIL [Concomitant]
  15. TRAMADOL HCL [Concomitant]
  16. UBIDECARENONE [Concomitant]

REACTIONS (2)
  - RENAL FAILURE [None]
  - RHABDOMYOLYSIS [None]
